FAERS Safety Report 5959717-X (Version None)
Quarter: 2008Q4

REPORT INFORMATION
  Report Type: 
  Country: None (occurrence: None)
  Receive Date: 20081119
  Receipt Date: 20081119
  Transmission Date: 20090506
  Serious: Yes (Hospitalization)
  Sender: FDA-Public Use
  Company Number: None

PATIENT
  Age: 63 Year
  Sex: Male
  Weight: 80.2 kg

DRUGS (11)
  1. HEPARIN [Suspect]
     Indication: ANTICOAGULANT THERAPY
     Dosage: 25000 UNITS, IV CONTINUOUS
     Route: 042
     Dates: start: 20080621
  2. HEPARIN [Suspect]
     Indication: ANTICOAGULANT THERAPY
     Dosage: 25000 UNITS, IV CONTINUOUS
     Route: 042
     Dates: start: 20080622
  3. HEPARIN [Suspect]
     Indication: ANTICOAGULANT THERAPY
     Dosage: 25000 UNITS, IV CONTINUOUS
     Route: 042
     Dates: start: 20080623
  4. . [Concomitant]
  5. . [Concomitant]
  6. FUROSEMIDE [Concomitant]
  7. ISOSORBIDE DINITRATE [Concomitant]
  8. DILAUDID [Concomitant]
  9. AMIODARONE HCL [Concomitant]
  10. METOPROLOL TARTRATE [Concomitant]
  11. HYDRALAZINE HCL [Concomitant]

REACTIONS (2)
  - ATRIAL FIBRILLATION [None]
  - HEPARIN-INDUCED THROMBOCYTOPENIA [None]
